FAERS Safety Report 24611231 (Version 1)
Quarter: 2024Q4

REPORT INFORMATION
  Report Type: Spontaneous
  Country: RO (occurrence: RO)
  Receive Date: 20241113
  Receipt Date: 20241113
  Transmission Date: 20250115
  Serious: Yes (Hospitalization, Other)
  Sender: ALEXION PHARMACEUTICALS
  Company Number: RO-AstraZeneca-CH-00728725A

PATIENT
  Age: 72 Year
  Weight: 81 kg

DRUGS (1)
  1. DAPAGLIFLOZIN [Suspect]
     Active Substance: DAPAGLIFLOZIN
     Indication: Chronic kidney disease
     Dosage: 10 MILLIGRAM, QD

REACTIONS (4)
  - Cardiac failure [Recovered/Resolved]
  - Cerebrovascular accident [Recovered/Resolved]
  - Chronic kidney disease [Unknown]
  - Myocardial infarction [Unknown]
